FAERS Safety Report 9285937 (Version 1)
Quarter: 2013Q2

REPORT INFORMATION
  Report Type: Spontaneous
  Country: GB (occurrence: None)
  Receive Date: 20130506
  Receipt Date: 20130506
  Transmission Date: 20140414
  Serious: Yes (Other)
  Sender: FDA-Public Use
  Company Number: FK201301424

PATIENT
  Age: 77 Year
  Sex: Male

DRUGS (11)
  1. METHOTREXATE (MANUFACTURER UNKNOWN) (METHOTREXATE) (METHOTREXATE) [Suspect]
     Indication: CROHN^S DISEASE
  2. IMIQUIMOD [Suspect]
     Indication: BASAL CELL CARCINOMA
     Route: 061
     Dates: start: 20130307, end: 20130411
  3. ADCAL-D3 (LEKOVITCA) [Concomitant]
  4. ALENDRONATE (ALENDRONIC ACID) [Concomitant]
  5. AMOXICILLIN (AMOXICILLIN) [Concomitant]
  6. CARBOCISTEINE (CARBOCISTEINE) [Concomitant]
  7. DIORALYTE (DIORALYTE/02025001/) [Concomitant]
  8. LOPERAMIDE (LOPERAMIDE) [Concomitant]
  9. SEREVENT (SALMETROL XINAFOATE) [Concomitant]
  10. TRAZODONE (TRAZODONE) [Concomitant]
  11. WARFARIN (WARFARIN) [Concomitant]

REACTIONS (2)
  - Drug interaction [None]
  - Pancytopenia [None]
